FAERS Safety Report 8801550 (Version 2)
Quarter: 2012Q4

REPORT INFORMATION
  Report Type: Report from Study
  Country: RU (occurrence: RU)
  Receive Date: 20120921
  Receipt Date: 20121003
  Transmission Date: 20130627
  Serious: Yes (Hospitalization)
  Sender: FDA-Public Use
  Company Number: RU-ROCHE-1124611

PATIENT
  Age: 55 Year
  Sex: Male
  Weight: 78 kg

DRUGS (6)
  1. ROACTEMRA [Suspect]
     Indication: RHEUMATOID ARTHRITIS
     Dosage: last dose prior to SAE on 10/Aug/2012, Last dose administered 8 mg/kg
     Route: 042
     Dates: start: 20120621
  2. METHYLPREDNISOLON [Suspect]
     Indication: RHEUMATOID ARTHRITIS
     Route: 065
     Dates: start: 20120902
  3. METHYLPREDNISOLON [Suspect]
     Route: 065
     Dates: start: 20120907
  4. ENALAPRIL [Concomitant]
     Indication: HYPERTENSION
  5. INDAPAMID [Concomitant]
     Indication: HYPERTENSION
  6. ARBIDOL [Concomitant]
     Indication: RESPIRATORY TRACT INFECTION
     Route: 065
     Dates: start: 20120510

REACTIONS (1)
  - Sepsis [Not Recovered/Not Resolved]
